FAERS Safety Report 4291169-0 (Version None)
Quarter: 2004Q1

REPORT INFORMATION
  Report Type: 
  Country: None (occurrence: None)
  Receive Date: 20040211
  Receipt Date: 20020306
  Transmission Date: 20041129
  Serious: Yes (Other)
  Sender: FDA-Public Use
  Company Number: 200212335US

PATIENT
  Sex: Female
  Weight: 61.4 kg

DRUGS (7)
  1. LOVENOX [Suspect]
     Indication: MITRAL VALVE REPLACEMENT
     Route: 058
     Dates: start: 20010727, end: 20020120
  2. COUMADIN [Concomitant]
     Dates: start: 19970101, end: 20011010
  3. MULTIVITAMIN [Concomitant]
  4. INDERAL [Concomitant]
  5. ORTHO CYCLEN-28 [Concomitant]
     Dates: end: 20030801
  6. CLARITIN-D [Concomitant]
     Dates: start: 20010316
  7. ACETAMINOPHEN AND HYDROCODONE BITARTRATE [Concomitant]
     Dates: start: 20010804

REACTIONS (18)
  - ABORTION SPONTANEOUS [None]
  - ACTIVATED PARTIAL THROMBOPLASTIN TIME PROLONGED [None]
  - CARDIOGENIC SHOCK [None]
  - COMPLICATIONS OF MATERNAL EXPOSURE TO THERAPEUTIC DRUGS [None]
  - DIZZINESS [None]
  - DRUG INEFFECTIVE [None]
  - EMBOLISM [None]
  - HAEMATOCRIT INCREASED [None]
  - HYPOAESTHESIA [None]
  - INTERNATIONAL NORMALISED RATIO INCREASED [None]
  - INTRA-UTERINE DEATH [None]
  - LABORATORY TEST ABNORMAL [None]
  - MATERNAL DRUGS AFFECTING FOETUS [None]
  - MITRAL VALVE PROLAPSE [None]
  - NEUROLOGICAL SYMPTOM [None]
  - PROTHROMBIN TIME PROLONGED [None]
  - PULMONARY OEDEMA [None]
  - VISION BLURRED [None]
